FAERS Safety Report 6108141-8 (Version None)
Quarter: 2009Q1

REPORT INFORMATION
  Report Type: 
  Country: None (occurrence: None)
  Receive Date: 20090309
  Receipt Date: 20090223
  Transmission Date: 20090719
  Serious: Yes (Hospitalization)
  Sender: FDA-Public Use
  Company Number: US-ROCHE-616327

PATIENT
  Age: 91 Year
  Sex: Female

DRUGS (1)
  1. BONIVA [Suspect]
     Indication: DRUG USE FOR UNKNOWN INDICATION
     Dosage: TAKE THE DOSAGE ON LAST SUNDAY OF EACH MONTH
     Route: 065
     Dates: start: 20040101

REACTIONS (1)
  - FALL [None]
